FAERS Safety Report 6424358-7 (Version None)
Quarter: 2009Q4

REPORT INFORMATION
  Report Type: 
  Country: None (occurrence: None)
  Receive Date: 20091103
  Receipt Date: 20091022
  Transmission Date: 20100525
  Serious: Yes (Other)
  Sender: FDA-Public Use
  Company Number: US-JNJFOC-20091007668

PATIENT
  Age: 40 Year
  Sex: Male
  Weight: 72.58 kg

DRUGS (2)
  1. EXTRA STRENGTH TYLENOL [Suspect]
     Indication: INSOMNIA
     Route: 048
  2. ASPIRIN [Concomitant]
     Indication: CARDIOVASCULAR EVENT PROPHYLAXIS

REACTIONS (3)
  - ABDOMINAL PAIN UPPER [None]
  - HAEMATOCHEZIA [None]
  - WRONG TECHNIQUE IN DRUG USAGE PROCESS [None]
